FAERS Safety Report 15993818 (Version 4)
Quarter: 2020Q1

REPORT INFORMATION
  Report Type: Report from Study
  Country: JP (occurrence: JP)
  Receive Date: 20190222
  Receipt Date: 20200214
  Transmission Date: 20200409
  Serious: Yes (Other)
  Sender: FDA-Public Use
  Company Number: JP-TEVA-2018-JP-863260

PATIENT
  Age: 21 Year
  Sex: Female
  Weight: 47.4 kg

DRUGS (1)
  1. GLATIRAMER ACETATE. [Suspect]
     Active Substance: GLATIRAMER ACETATE
     Indication: RELAPSING-REMITTING MULTIPLE SCLEROSIS
     Dosage: 20 MILLIGRAM/MILLILITERS DAILY;
     Route: 058
     Dates: start: 20161226

REACTIONS (11)
  - Product administered at inappropriate site [Unknown]
  - Injection site erythema [Recovering/Resolving]
  - Hypoacusis [Recovering/Resolving]
  - Injection site pruritus [Recovering/Resolving]
  - Otitis media [Recovered/Resolved]
  - Injection site swelling [Recovering/Resolving]
  - Injection site induration [Recovering/Resolving]
  - Injection site swelling [Recovering/Resolving]
  - Sudden hearing loss [Recovered/Resolved]
  - Injection site induration [Recovering/Resolving]
  - Muscular weakness [Recovered/Resolved]

NARRATIVE: CASE EVENT DATE: 20161227
